FAERS Safety Report 8347274-2 (Version None)
Quarter: 2012Q2

REPORT INFORMATION
  Report Type: 
  Country: None (occurrence: None)
  Receive Date: 20120507
  Receipt Date: 20120417
  Transmission Date: 20120825
  Serious: Yes (Hospitalization, Disabling, Other)
  Sender: FDA-Public Use
  Company Number: 2010MA002232

PATIENT
  Sex: Female

DRUGS (32)
  1. ALBUTEROL [Concomitant]
  2. LYRICA [Concomitant]
  3. IBUPROFEN [Concomitant]
  4. NITROGLYCERIN [Concomitant]
  5. LORTAB [Concomitant]
  6. ALPRAZOLAM [Concomitant]
  7. ANTIBIOTICS [Concomitant]
  8. CLONIDINE [Concomitant]
  9. FLUCONAZOLE [Concomitant]
  10. NEBULIZER TREATMENTS [Concomitant]
  11. NORVASC [Concomitant]
  12. ASPIRIN [Concomitant]
  13. CARDENE [Concomitant]
  14. HYDROCHLOROTHIAZIDE [Concomitant]
  15. LEVAQUIN [Concomitant]
  16. METOPROLOL TARTRATE [Concomitant]
  17. GUAIFENESIN [Concomitant]
  18. ACETAMINOPHEN W/ CODEINE [Concomitant]
  19. AZITHROMYCIN [Concomitant]
  20. METHYLPREDNISOLONE [Concomitant]
  21. MULTI-VITAMIN [Concomitant]
  22. PROMETHAZINE [Concomitant]
  23. METOCLOPRAMIDE [Suspect]
     Indication: NAUSEA
     Dosage: 10 MG;IM
     Route: 030
     Dates: start: 20051011, end: 20090528
  24. ADVAIR DISKUS 100/50 [Concomitant]
  25. ATIVAN [Concomitant]
  26. ERY-TAB [Concomitant]
  27. HYDROCODONE BITARTRATE AND ACETAMINOPHEN [Concomitant]
  28. STEROIDS [Concomitant]
  29. ULTRAM [Concomitant]
  30. TRAMADOL HYDROCHLORIDE [Concomitant]
  31. AMBIEN [Concomitant]
  32. PROPOXYPHENE-N100/APAP [Concomitant]

REACTIONS (35)
  - ECONOMIC PROBLEM [None]
  - MULTIPLE INJURIES [None]
  - URINARY TRACT INFECTION [None]
  - HYPOKALAEMIA [None]
  - DEHYDRATION [None]
  - TREMOR [None]
  - NERVOUS SYSTEM DISORDER [None]
  - TARDIVE DYSKINESIA [None]
  - CHEST PAIN [None]
  - ASTHMA [None]
  - HYPERTENSIVE CARDIOMEGALY [None]
  - ANXIETY [None]
  - EYE PAIN [None]
  - VERTIGO [None]
  - DRUG SCREEN POSITIVE [None]
  - TREATMENT NONCOMPLIANCE [None]
  - EXTRAPYRAMIDAL DISORDER [None]
  - BACK PAIN [None]
  - CHEST DISCOMFORT [None]
  - DYSKINESIA [None]
  - MASTOIDITIS [None]
  - ACTIVITIES OF DAILY LIVING IMPAIRED [None]
  - DIZZINESS [None]
  - MOVEMENT DISORDER [None]
  - PAIN [None]
  - MENTAL DISORDER [None]
  - SINUSITIS [None]
  - CHOLELITHIASIS [None]
  - BRONCHITIS [None]
  - DIVERTICULUM [None]
  - TENSION HEADACHE [None]
  - SINUS HEADACHE [None]
  - DEFORMITY [None]
  - HYPERGLYCAEMIA [None]
  - PAIN IN EXTREMITY [None]
